FAERS Safety Report 11186946 (Version 1)
Quarter: 2015Q2

REPORT INFORMATION
  Report Type: Spontaneous
  Country: JP (occurrence: JP)
  Receive Date: 20150615
  Receipt Date: 20150615
  Transmission Date: 20150821
  Serious: Yes (Other)
  Sender: FDA-Public Use
  Company Number: JP-AMGEN-JPNSP2015057940

PATIENT
  Age: 6 Decade
  Sex: Female

DRUGS (1)
  1. NESP [Suspect]
     Active Substance: DARBEPOETIN ALFA
     Indication: ANAEMIA
     Dosage: 120 MUG, Q2WK
     Route: 058

REACTIONS (2)
  - Aplasia pure red cell [Recovered/Resolved]
  - Pyrexia [Recovered/Resolved]
